FAERS Safety Report 6255057-2 (Version None)
Quarter: 2009Q3

REPORT INFORMATION
  Report Type: 
  Country: None (occurrence: None)
  Receive Date: 20090702
  Receipt Date: 20090702
  Transmission Date: 20100115
  Serious: Yes (Other)
  Sender: FDA-Public Use
  Company Number: US-PFIZER INC-2009218366

PATIENT

DRUGS (1)
  1. CELEBREX [Suspect]
     Indication: OSTEOARTHRITIS

REACTIONS (3)
  - PHARYNGEAL OEDEMA [None]
  - PYREXIA [None]
  - URTICARIA [None]
